FAERS Safety Report 5867598-8 (Version None)
Quarter: 2008Q3

REPORT INFORMATION
  Report Type: 
  Country: None (occurrence: None)
  Receive Date: 20080902
  Receipt Date: 20071016
  Transmission Date: 20090109
  Serious: No
  Sender: FDA-Public Use
  Company Number: US-ABBOTT-07P-163-0421574-00

PATIENT
  Sex: Male
  Weight: 69.008 kg

DRUGS (10)
  1. DEPAKOTE ER [Suspect]
     Indication: PETIT MAL EPILEPSY
     Route: 048
     Dates: start: 20071001, end: 20071008
  2. DEPAKOTE ER [Suspect]
     Indication: AFFECTIVE DISORDER
  3. DEPAKOTE ER [Suspect]
     Indication: PETIT MAL EPILEPSY
     Route: 048
     Dates: start: 20071008, end: 20071015
  4. DEPAKOTE ER [Suspect]
     Indication: AFFECTIVE DISORDER
     Route: 048
     Dates: start: 20071015
  5. DOXAZOSIN MESYLATE [Suspect]
     Route: 048
  6. AMLODIPINE [Concomitant]
     Indication: DRUG USE FOR UNKNOWN INDICATION
     Route: 048
  7. CLONAZEPAM [Concomitant]
     Indication: DRUG USE FOR UNKNOWN INDICATION
     Route: 048
  8. GENERIC SOMA [Concomitant]
     Indication: DRUG USE FOR UNKNOWN INDICATION
     Route: 048
  9. PROPACET 100 [Concomitant]
     Indication: DRUG USE FOR UNKNOWN INDICATION
     Route: 048
  10. CELECOXIB [Concomitant]
     Indication: DRUG USE FOR UNKNOWN INDICATION
     Route: 048

REACTIONS (3)
  - FLIGHT OF IDEAS [None]
  - SENSORY DISTURBANCE [None]
  - TINNITUS [None]
